FAERS Safety Report 4446505-9 (Version None)
Quarter: 2004Q3

REPORT INFORMATION
  Report Type: 
  Country: None (occurrence: None)
  Receive Date: 20040908
  Receipt Date: 20040828
  Transmission Date: 20050211
  Serious: Yes (Life-Threatening, Hospitalization)
  Sender: FDA-Public Use
  Company Number: 04-00545

PATIENT
  Age: 23 Year
  Sex: Male

DRUGS (2)
  1. SULFATRIM [Suspect]
     Indication: OTITIS EXTERNA
  2. UNSPECIFIED DECONGESTANT [Concomitant]

REACTIONS (19)
  - ACTIVATED PARTIAL THROMBOPLASTIN TIME PROLONGED [None]
  - ASCITES [None]
  - BIOPSY LIVER ABNORMAL [None]
  - COAGULOPATHY [None]
  - DIALYSIS [None]
  - HALLUCINATION [None]
  - HEPATIC ENCEPHALOPATHY [None]
  - HEPATIC FAILURE [None]
  - HEPATIC NECROSIS [None]
  - HEPATITIS FULMINANT [None]
  - INFLUENZA LIKE ILLNESS [None]
  - INTERNATIONAL NORMALISED RATIO INCREASED [None]
  - LIVER TRANSPLANT [None]
  - METABOLIC ACIDOSIS [None]
  - POSTOPERATIVE INFECTION [None]
  - PROTHROMBIN TIME PROLONGED [None]
  - RASH [None]
  - RENAL FAILURE ACUTE [None]
  - RESPIRATORY FAILURE [None]
